FAERS Safety Report 9522511 (Version 1)
Quarter: 2013Q1

REPORT INFORMATION
  Report Type: Spontaneous
  Country: US (occurrence: None)
  Receive Date: 20130305
  Receipt Date: 20130305
  Transmission Date: 20140127
  Serious: Yes (Other)
  Sender: FDA-Public Use
  Company Number: 163-21880-12032243

PATIENT
  Age: 68 Year
  Sex: Male

DRUGS (7)
  1. REVLIMID (LENALIDOMIDE) (15 MILLIGRAM, CAPSULES) [Suspect]
     Indication: PLASMA CELL MYELOMA
     Dosage: D1-14
     Route: 048
     Dates: start: 201202, end: 201203
  2. SIMVASTATIN (SIMVASTATIN) [Concomitant]
  3. HCTZ (HYDROCHLOROTHIAZIDE) [Concomitant]
  4. AMLODIPINE (AMLODIPINE) [Concomitant]
  5. COMPAZINE (PROCHLORPERAZINE EDISYLATE) [Concomitant]
  6. ACYCLOVIR (ACICLOVIR) (ACICLOVIR) [Concomitant]
  7. QUINAPRIL (QUINAPRIL) [Concomitant]

REACTIONS (1)
  - Plasma cell myeloma [None]
